FAERS Safety Report 14363345 (Version 1)
Quarter: 2018Q1

REPORT INFORMATION
  Report Type: Spontaneous
  Country: US (occurrence: US)
  Receive Date: 20180108
  Receipt Date: 20180108
  Transmission Date: 20180509
  Serious: No
  Sender: FDA-Public Use
  Company Number: US-009507513-1801USA000268

PATIENT
  Sex: Female

DRUGS (2)
  1. NEXPLANON [Suspect]
     Active Substance: ETONOGESTREL
     Indication: MENORRHAGIA
     Dosage: 68 MG, OVER THREE YEARS
     Route: 059
     Dates: start: 20161012, end: 20171121
  2. NEXPLANON [Suspect]
     Active Substance: ETONOGESTREL
     Indication: POLYMENORRHOEA

REACTIONS (1)
  - Menstruation irregular [Unknown]
